FAERS Safety Report 4775791-0 (Version None)
Quarter: 2005Q3

REPORT INFORMATION
  Report Type: 
  Country: None (occurrence: None)
  Receive Date: 20050922
  Receipt Date: 20050909
  Transmission Date: 20060218
  Serious: Yes (Other)
  Sender: FDA-Public Use
  Company Number: US-AMGEN-US150131

PATIENT
  Sex: Female

DRUGS (3)
  1. PROCRIT [Suspect]
     Indication: RENAL FAILURE CHRONIC
     Dates: start: 20040901
  2. LIPITOR [Concomitant]
  3. IRON DEXTRAN [Concomitant]

REACTIONS (3)
  - ASTHENIA [None]
  - HAEMATOCRIT DECREASED [None]
  - JAUNDICE [None]
